FAERS Safety Report 10413907 (Version 1)
Quarter: 2014Q3

REPORT INFORMATION
  Report Type: Spontaneous
  Country: BR (occurrence: None)
  Receive Date: 20140825
  Receipt Date: 20140825
  Transmission Date: 20150326
  Serious: Yes (Other)
  Sender: FDA-Public Use
  Company Number: AUR-APL-2014-08934

PATIENT
  Age: 67 Year
  Sex: Female

DRUGS (1)
  1. PIPERACILLIN AND TAZOBACTAM [Suspect]
     Active Substance: PIPERACILLIN SODIUM\TAZOBACTAM SODIUM
     Indication: PNEUMONIA

REACTIONS (7)
  - VIIth nerve paralysis [None]
  - Dysarthria [None]
  - Asterixis [None]
  - Cerebellar syndrome [None]
  - Myoclonus [None]
  - Neurotoxicity [None]
  - Muscular weakness [None]
